FAERS Safety Report 8017398-8 (Version None)
Quarter: 2012Q1

REPORT INFORMATION
  Report Type: 
  Country: None (occurrence: None)
  Receive Date: 20120102
  Receipt Date: 20111219
  Transmission Date: 20120608
  Serious: Yes (Death)
  Sender: FDA-Public Use
  Company Number: US-PFIZER INC-2011311496

PATIENT
  Age: 43 Year
  Sex: Female

DRUGS (6)
  1. METAXALONE [Suspect]
     Route: 048
  2. CARISOPRODOL [Suspect]
     Route: 048
  3. CITALOPRAM [Suspect]
     Route: 048
  4. PREGABALIN [Suspect]
     Route: 048
  5. QUETIAPINE [Suspect]
     Route: 048
  6. DIAZEPAM [Suspect]
     Route: 048

REACTIONS (1)
  - COMPLETED SUICIDE [None]
